FAERS Safety Report 18668937 (Version 1)
Quarter: 2020Q4

REPORT INFORMATION
  Report Type: Spontaneous
  Country: US (occurrence: US)
  Receive Date: 20201226
  Receipt Date: 20201226
  Transmission Date: 20210114
  Serious: No
  Sender: FDA-Public Use
  Company Number: None

PATIENT
  Age: 65 Year
  Sex: Male

DRUGS (1)
  1. COPAXONE [Suspect]
     Active Substance: GLATIRAMER ACETATE
     Route: 058
     Dates: start: 201901, end: 202012

REACTIONS (3)
  - Hypersensitivity [None]
  - Therapy interrupted [None]
  - Urticaria [None]

NARRATIVE: CASE EVENT DATE: 20201226
